FAERS Safety Report 10008133 (Version 1)
Quarter: 2014Q1

REPORT INFORMATION
  Report Type: Spontaneous
  Country: GB (occurrence: GB)
  Receive Date: 20140313
  Receipt Date: 20140313
  Transmission Date: 20141002
  Serious: Yes (Disabling)
  Sender: FDA-Public Use
  Company Number: GB-WATSON-2014-04283

PATIENT
  Age: 54 Year
  Sex: Female

DRUGS (3)
  1. AMLODIPINE (UNKNOWN) [Suspect]
     Indication: HYPERTENSION
     Dosage: UNK
     Route: 048
     Dates: start: 20130322
  2. OMEPRAZOLE [Concomitant]
     Indication: SURGERY
     Dosage: 20 MG, UNKNOWN
     Route: 048
     Dates: start: 20130318, end: 201304
  3. LOSARTAN [Concomitant]
     Indication: HYPERTENSION
     Dosage: 25 MG, UNKNOWN;STARTED ON ADMISSION
     Route: 048

REACTIONS (1)
  - Bromhidrosis [Recovered/Resolved]
